FAERS Safety Report 6275467-7 (Version None)
Quarter: 2009Q3

REPORT INFORMATION
  Report Type: 
  Country: None (occurrence: None)
  Receive Date: 20090721
  Receipt Date: 20090710
  Transmission Date: 20100115
  Serious: Yes (Hospitalization)
  Sender: FDA-Public Use
  Company Number: RO-MERCK-0907USA02331

PATIENT
  Age: 29 Year
  Sex: Male

DRUGS (6)
  1. INVANZ [Suspect]
     Indication: PNEUMONIA
     Route: 042
  2. LEVOFLOXACIN [Suspect]
     Indication: PNEUMONIA
     Route: 065
  3. ISONIAZID [Concomitant]
     Indication: PULMONARY TUBERCULOSIS
     Route: 065
  4. RIFAMPIN [Concomitant]
     Indication: PULMONARY TUBERCULOSIS
     Route: 065
  5. PYRAZINAMIDE [Concomitant]
     Indication: PULMONARY TUBERCULOSIS
     Route: 065
  6. PREDNISONE [Concomitant]
     Indication: PULMONARY TUBERCULOSIS
     Route: 065

REACTIONS (4)
  - ANTINEUTROPHIL CYTOPLASMIC ANTIBODY [None]
  - ANTIPHOSPHOLIPID ANTIBODIES [None]
  - GLOMERULONEPHRITIS [None]
  - LUPUS NEPHRITIS [None]
